FAERS Safety Report 6091595-3 (Version None)
Quarter: 2009Q1

REPORT INFORMATION
  Report Type: 
  Country: None (occurrence: None)
  Receive Date: 20090225
  Receipt Date: 20080206
  Transmission Date: 20090719
  Serious: No
  Sender: FDA-Public Use
  Company Number: A0707833A

PATIENT
  Age: 63 Year
  Sex: Female

DRUGS (1)
  1. VALTREX [Suspect]
     Dosage: 200MG FOUR TIMES PER DAY
     Route: 048
     Dates: start: 20020101

REACTIONS (2)
  - FATIGUE [None]
  - OROPHARYNGEAL PAIN [None]
